FAERS Safety Report 19257598 (Version 5)
Quarter: 2021Q2

REPORT INFORMATION
  Report Type: Report from Study
  Country: FR (occurrence: FR)
  Receive Date: 20210514
  Receipt Date: 20210616
  Transmission Date: 20210717
  Serious: Yes (Hospitalization)
  Sender: FDA-Public Use
  Company Number: FR-ROCHE-2829121

PATIENT
  Age: 63 Year
  Sex: Female
  Weight: 76 kg

DRUGS (8)
  1. OCRELIZUMAB. [Suspect]
     Active Substance: OCRELIZUMAB
     Indication: PRIMARY PROGRESSIVE MULTIPLE SCLEROSIS
     Dosage: TWO IV INFUSIONS SEPARATED BY 14 DAYS AT A SCHEDULED INTERVAL OF EVERY 24 WEEKS UP TO AT LEAST 120 W
     Route: 042
     Dates: start: 20121112, end: 20160201
  2. METHYLPREDNISOLONE. [Concomitant]
     Active Substance: METHYLPREDNISOLONE
     Dosage: SUBSEQUENT DOSES RECEIVED ON 26/NOV/2012, 13/MAY/2013, 29/APR/2013, 15/OCT/2013, 28/OCT/2013, 28/MAR
     Dates: start: 20121112
  3. XATRAL [Concomitant]
     Active Substance: ALFUZOSIN
     Dates: start: 20170105
  4. AERIUS [Concomitant]
     Dosage: ON 26/NOV/2012, RECEIVED SUBSEQUENT DOSE (1 DF)
     Dates: start: 20121112
  5. PARACETAMOL [Concomitant]
     Active Substance: ACETAMINOPHEN
     Dosage: SUBSEQUENT DOSES RECEIVED ON 26/NOV/2012, 13/MAY/2013, 29/APR/2013, 15/OCT/2013, 28/OCT/2013, 28/MAR
     Dates: start: 20121112
  6. AERIUS [Concomitant]
     Dosage: SUBSEQUENT DOSES RECEIVED ON 26/NOV/2012, 13/MAY/2013, 29/APR/2013, 15/OCT/2013, 28/OCT/2013, 28/MAR
     Dates: start: 20121112
  7. OCRELIZUMAB. [Suspect]
     Active Substance: OCRELIZUMAB
     Indication: PRIMARY PROGRESSIVE MULTIPLE SCLEROSIS
     Dosage: ADMINISTERED 300 MG ON DAY 1 AND 15 OF FIRST 24 WEEK CYCLES AND THEN SINGLE INFUSION OF 600 MG FOR E
     Route: 042
     Dates: start: 20160202
  8. CETIRIZINE [Concomitant]
     Active Substance: CETIRIZINE HYDROCHLORIDE
     Dates: start: 20171208

REACTIONS (1)
  - COVID-19 pneumonia [Recovered/Resolved]

NARRATIVE: CASE EVENT DATE: 20210321
